FAERS Safety Report 5616039-4 (Version None)
Quarter: 2008Q1

REPORT INFORMATION
  Report Type: 
  Country: None (occurrence: None)
  Receive Date: 20080206
  Receipt Date: 20080125
  Transmission Date: 20080703
  Serious: Yes (Other)
  Sender: FDA-Public Use
  Company Number: US-PFIZER INC-2007064243

PATIENT
  Sex: Male
  Weight: 11.818 kg

DRUGS (2)
  1. ZITHROMAX [Suspect]
     Indication: EAR INFECTION
     Route: 048
     Dates: start: 20070203, end: 20070205
  2. ZITHROMAX [Suspect]
     Indication: OTITIS MEDIA

REACTIONS (4)
  - EYE SWELLING [None]
  - FOOD ALLERGY [None]
  - HYPERSENSITIVITY [None]
  - RASH [None]
